FAERS Safety Report 23243090 (Version 6)
Quarter: 2024Q1

REPORT INFORMATION
  Report Type: Report from Study
  Country: CH (occurrence: CH)
  Receive Date: 20231130
  Receipt Date: 20240307
  Transmission Date: 20240409
  Serious: Yes (Death, Hospitalization, Other)
  Sender: FDA-Public Use
  Company Number: CH-ABBVIE-5515848

PATIENT
  Sex: Male

DRUGS (6)
  1. CARBIDOPA\LEVODOPA [Suspect]
     Active Substance: CARBIDOPA\LEVODOPA
     Indication: Parkinson^s disease
     Dosage: MD: 5.0 ML, CRD: 3.5 ML/H, ED: 1.0 ML?16H THERAPY
     Route: 050
     Dates: start: 20231121, end: 20231122
  2. CARBIDOPA\LEVODOPA [Suspect]
     Active Substance: CARBIDOPA\LEVODOPA
     Dosage: MD: 5.0 ML, CRD: 3.9 ML/H, ED: 1.0 ML?16H THERAPY
     Route: 050
     Dates: start: 20231122, end: 20231124
  3. CARBIDOPA\LEVODOPA [Suspect]
     Active Substance: CARBIDOPA\LEVODOPA
     Dosage: MD: 8.0 ML, CRD: 3.5 ML/H, ED: 1.0 ML?16H THERAPY
     Route: 050
     Dates: start: 20231124, end: 20231224
  4. BENSERAZIDE HYDROCHLORIDE\LEVODOPA [Concomitant]
     Active Substance: BENSERAZIDE HYDROCHLORIDE\LEVODOPA
     Indication: Product used for unknown indication
     Dosage: FREQUENCY TEXT: 1X
     Route: 048
     Dates: start: 20231123, end: 20231123
  5. XADAGO [Concomitant]
     Active Substance: SAFINAMIDE MESYLATE
     Indication: Product used for unknown indication
     Dosage: FREQUENCY TEXT: 1X
     Route: 048
  6. APOMORPHINE [Concomitant]
     Active Substance: APOMORPHINE
     Indication: Product used for unknown indication
     Dosage: APOMORPHINI HYDROCHLORIDUM HEMIHYDRICUM
     Route: 065

REACTIONS (17)
  - Death [Fatal]
  - Restlessness [Recovering/Resolving]
  - Fatigue [Unknown]
  - Slow response to stimuli [Recovering/Resolving]
  - Cerebrovascular disorder [Recovered/Resolved with Sequelae]
  - Hallucination [Unknown]
  - Nervousness [Not Recovered/Not Resolved]
  - Enteral nutrition [Recovering/Resolving]
  - Unresponsive to stimuli [Recovered/Resolved with Sequelae]
  - Abdominal operation [Unknown]
  - Somnolence [Not Recovered/Not Resolved]
  - Agitation [Not Recovered/Not Resolved]
  - Device issue [Not Recovered/Not Resolved]
  - Dysphagia [Not Recovered/Not Resolved]
  - Immobile [Not Recovered/Not Resolved]
  - Device dislocation [Not Recovered/Not Resolved]
  - Product colour issue [Not Recovered/Not Resolved]

NARRATIVE: CASE EVENT DATE: 20230101
